FAERS Safety Report 8678722 (Version 3)
Quarter: 2013Q4

REPORT INFORMATION
  Report Type: Spontaneous
  Country: US (occurrence: US)
  Receive Date: 20120723
  Receipt Date: 20131101
  Transmission Date: 20140711
  Serious: No
  Sender: FDA-Public Use
  Company Number: US-009507513-1207USA002407

PATIENT
  Age: 78 Year
  Sex: Female

DRUGS (4)
  1. JANUMET [Suspect]
     Indication: DIABETES MELLITUS
     Dosage: 50/1000, MG, BID
     Route: 048
     Dates: start: 20120409, end: 20120610
  2. BENAZEPRIL HYDROCHLORIDE [Concomitant]
  3. LIPITOR [Concomitant]
  4. METFORMIN [Concomitant]

REACTIONS (3)
  - Dizziness [Recovered/Resolved]
  - Drug ineffective [Unknown]
  - Diarrhoea [Unknown]
